FAERS Safety Report 5022239-7 (Version None)
Quarter: 2006Q2

REPORT INFORMATION
  Report Type: 
  Country: None (occurrence: None)
  Receive Date: 20060609
  Receipt Date: 20060529
  Transmission Date: 20061013
  Serious: Yes (Hospitalization)
  Sender: FDA-Public Use
  Company Number: 2006CG00932

PATIENT
  Age: 98 Year
  Sex: Female
  Weight: 51 kg

DRUGS (15)
  1. NEXIUM [Suspect]
     Route: 048
     Dates: end: 20060201
  2. ZESTRIL [Suspect]
     Indication: ESSENTIAL HYPERTENSION
     Route: 048
     Dates: start: 20060123, end: 20060217
  3. FLUDEX [Suspect]
     Indication: ESSENTIAL HYPERTENSION
     Route: 048
     Dates: start: 20060123, end: 20060217
  4. SECTRAL [Suspect]
     Indication: ESSENTIAL HYPERTENSION
     Route: 048
     Dates: start: 20060127, end: 20060217
  5. ZANIDIP [Suspect]
     Indication: ESSENTIAL HYPERTENSION
     Route: 048
     Dates: end: 20060217
  6. PROZAC [Suspect]
     Indication: DYSTHYMIC DISORDER
     Route: 048
     Dates: end: 20060217
  7. TARDYFERON [Suspect]
     Dates: end: 20060201
  8. SERC [Suspect]
     Dates: end: 20060201
  9. OLMIFON [Suspect]
     Dates: end: 20060201
  10. TEMESTA [Suspect]
     Dates: end: 20060201
  11. VENTOLIN [Suspect]
     Dates: end: 20060201
  12. KAYEXALATE [Suspect]
     Dates: end: 20060201
  13. KETEK [Suspect]
     Dates: start: 20060101, end: 20060201
  14. ALFATIL [Suspect]
     Dates: start: 20060101, end: 20060201
  15. CHIBRO-CADRON [Suspect]
     Dates: end: 20060201

REACTIONS (4)
  - FALL [None]
  - HYPERKALAEMIA [None]
  - HYPONATRAEMIA [None]
  - ORTHOSTATIC HYPOTENSION [None]
